FAERS Safety Report 5682202-X (Version None)
Quarter: 2008Q1

REPORT INFORMATION
  Report Type: 
  Country: None (occurrence: None)
  Receive Date: 20080327
  Receipt Date: 20080320
  Transmission Date: 20080703
  Serious: Yes (Other)
  Sender: FDA-Public Use
  Company Number: GB-AVENTIS-200721187GDDC

PATIENT
  Age: 50 Year
  Sex: Male
  Weight: 89.1 kg

DRUGS (10)
  1. DETEMIR [Suspect]
     Route: 058
     Dates: start: 20070724, end: 20071108
  2. NOVOPEN [Suspect]
  3. ATORVASTATIN CALCIUM [Concomitant]
     Dates: start: 20030106
  4. LISINOPRIL [Concomitant]
     Indication: HYPERTENSION
     Dates: start: 20061213
  5. METRONIDAZOLE GEL [Concomitant]
     Indication: RASH
     Route: 061
     Dates: start: 20020101
  6. MINOCYCLINE HCL [Concomitant]
     Indication: ACNE
     Route: 048
     Dates: start: 20030106
  7. SILDENAFIL CITRATE [Concomitant]
     Indication: ERECTILE DYSFUNCTION
     Route: 048
  8. TYLEX                              /00547501/ [Concomitant]
     Indication: ANALGESIA
     Route: 048
     Dates: start: 20060101
  9. SIBUTRAMINE [Concomitant]
     Route: 048
     Dates: start: 20050520, end: 20070815
  10. AMLODIPINE [Concomitant]
     Indication: HYPERTENSION
     Dates: start: 20071017

REACTIONS (1)
  - DEEP VEIN THROMBOSIS [None]
